FAERS Safety Report 6967208-2 (Version None)
Quarter: 2010Q3

REPORT INFORMATION
  Report Type: 
  Country: None (occurrence: None)
  Receive Date: 20100907
  Receipt Date: 20100825
  Transmission Date: 20110219
  Serious: No
  Sender: FDA-Public Use
  Company Number: US-JNJFOC-20100808693

PATIENT
  Sex: Male
  Weight: 95.26 kg

DRUGS (3)
  1. FENTANYL-100 [Suspect]
     Indication: RHEUMATOID ARTHRITIS
     Route: 062
  2. FENTANYL CITRATE [Suspect]
     Indication: RHEUMATOID ARTHRITIS
     Route: 062
  3. UNKNOWN MEDICATION [Concomitant]
     Indication: DIABETES MELLITUS

REACTIONS (1)
  - WRONG TECHNIQUE IN DRUG USAGE PROCESS [None]
